FAERS Safety Report 9771112 (Version 1)
Quarter: 2013Q4

REPORT INFORMATION
  Report Type: Spontaneous
  Country: DE (occurrence: DE)
  Receive Date: 20131218
  Receipt Date: 20131218
  Transmission Date: 20140711
  Serious: Yes (Hospitalization, Other)
  Sender: FDA-Public Use
  Company Number: PHHY2013DE145457

PATIENT
  Age: 57 Year
  Sex: Female

DRUGS (3)
  1. EPIRUBICIN [Suspect]
  2. FLUOROURACIL [Concomitant]
  3. CYCLOPHOSPHAMIDE [Concomitant]
     Dosage: UNK

REACTIONS (10)
  - Breast necrosis [Unknown]
  - Breast pain [Unknown]
  - Erythema [Unknown]
  - Infusion site pain [Unknown]
  - Infusion site extravasation [Unknown]
  - Infusion site erythema [Unknown]
  - Skin necrosis [Unknown]
  - Soft tissue necrosis [Unknown]
  - Postoperative wound complication [Recovered/Resolved]
  - Infusion site oedema [Unknown]
